FAERS Safety Report 7652442-9 (Version None)
Quarter: 2011Q3

REPORT INFORMATION
  Report Type: 
  Country: None (occurrence: None)
  Receive Date: 20110803
  Receipt Date: 20110721
  Transmission Date: 20111222
  Serious: Yes (Other)
  Sender: FDA-Public Use
  Company Number: DE-ELI_LILLY_AND_COMPANY-DE201107005642

PATIENT
  Age: 68 Year
  Sex: Male

DRUGS (8)
  1. PRAMIPEXOLE DIHYCHLLORIDE [Concomitant]
  2. ARICEPT [Concomitant]
  3. FORTEO [Suspect]
     Indication: OSTEOPOROSIS
     Dosage: UNK
     Route: 058
     Dates: start: 20101201, end: 20110401
  4. CALCIUM D3 [Concomitant]
  5. NALOXONE [Concomitant]
  6. LEVODOPA [Concomitant]
  7. NOVALGIN [Concomitant]
  8. MOVIPREP [Concomitant]

REACTIONS (1)
  - ARRHYTHMIA [None]
